FAERS Safety Report 6500102-X (Version None)
Quarter: 2009Q4

REPORT INFORMATION
  Report Type: 
  Country: None (occurrence: None)
  Receive Date: 20091127
  Receipt Date: 20090923
  Transmission Date: 20100525
  Serious: Yes (Other)
  Sender: FDA-Public Use
  Company Number: WAES 0708USA02983

PATIENT
  Age: 48 Year
  Sex: Female

DRUGS (2)
  1. FOSAMAX [Suspect]
     Indication: OSTEOPOROSIS
     Dosage: 70 MG/PO
     Route: 048
     Dates: start: 20010219
  2. ACTONEL [Suspect]
     Dates: start: 20020101, end: 20040101

REACTIONS (8)
  - ANXIETY [None]
  - DENTAL FISTULA [None]
  - DEPRESSION [None]
  - GINGIVAL ABSCESS [None]
  - HEADACHE [None]
  - MOUTH ULCERATION [None]
  - OSTEONECROSIS [None]
  - TOOTH FRACTURE [None]
